FAERS Safety Report 4898332-6 (Version None)
Quarter: 2006Q1

REPORT INFORMATION
  Report Type: 
  Country: None (occurrence: None)
  Receive Date: 20060127
  Receipt Date: 20060109
  Transmission Date: 20060701
  Serious: Yes (Hospitalization)
  Sender: FDA-Public Use
  Company Number: US200601001171

PATIENT
  Age: 92 Year

DRUGS (5)
  1. FORTEO [Suspect]
     Dates: start: 20051228
  2. FORTEO [Concomitant]
  3. EX-LAX (YELLOW PHENOLPHTHALEIN) [Concomitant]
  4. FOSAMAX [Concomitant]
  5. CALCIUM W/VITAMIN D NOS (CALCIUM, VITAMIN D NOS) [Concomitant]

REACTIONS (6)
  - CONFUSIONAL STATE [None]
  - CONSTIPATION [None]
  - JOINT SPRAIN [None]
  - LIGAMENT INJURY [None]
  - PHARMACEUTICAL PRODUCT COMPLAINT [None]
  - SHOULDER PAIN [None]
